FAERS Safety Report 23957699 (Version 1)
Quarter: 2024Q2

REPORT INFORMATION
  Report Type: Spontaneous
  Country: US (occurrence: US)
  Receive Date: 20240610
  Receipt Date: 20240610
  Transmission Date: 20240716
  Serious: No
  Sender: FDA-Public Use
  Company Number: US-MYLANLABS-2024M1048645

PATIENT
  Sex: Male
  Weight: 80.74 kg

DRUGS (4)
  1. ATORVASTATIN [Suspect]
     Active Substance: ATORVASTATIN
     Indication: Blood cholesterol
     Dosage: 40 MILLIGRAM, QD (ONE PER DAY)
     Route: 065
  2. INFLECTRA [Concomitant]
     Active Substance: INFLIXIMAB-DYYB
     Indication: Crohn^s disease
     Dosage: 250 MILLILITER (ONCE EVERY 8 WEEKS)
     Route: 065
  3. CARVEDILOL [Concomitant]
     Active Substance: CARVEDILOL
     Indication: Blood pressure measurement
     Dosage: 3.125 MILLIGRAM, BID (TWO PER DAY)
     Route: 065
  4. PAXLOVID [Concomitant]
     Active Substance: NIRMATRELVIR\RITONAVIR
     Indication: COVID-19
     Dosage: UNK, BID (2 TIMES A DAY FOR 5 DAYS)
     Route: 048
     Dates: start: 20231210, end: 20231213

REACTIONS (4)
  - Renal disorder [Unknown]
  - Pain [Unknown]
  - Back pain [Unknown]
  - Rash [Unknown]
